FAERS Safety Report 4727045-6 (Version None)
Quarter: 2005Q3

REPORT INFORMATION
  Report Type: 
  Country: None (occurrence: None)
  Receive Date: 20050726
  Receipt Date: 20050726
  Transmission Date: 20060218
  Serious: Yes (Other)
  Sender: FDA-Public Use
  Company Number: None

PATIENT
  Age: 93 Year
  Sex: Male
  Weight: 66.6 kg

DRUGS (10)
  1. TERAZOSIN [Suspect]
  2. CITALOPRAM [Concomitant]
  3. ACETAMINOPHEN [Concomitant]
  4. NAPROXEN [Concomitant]
  5. SENNA [Concomitant]
  6. LORATADINE [Concomitant]
  7. . [Concomitant]
  8. MILK OF MAGNESIA [Concomitant]
  9. FERROUS SULFATE TAB [Concomitant]
  10. DILTIAZEM [Concomitant]

REACTIONS (1)
  - DIZZINESS [None]
